FAERS Safety Report 13150613 (Version 2)
Quarter: 2017Q1

REPORT INFORMATION
  Report Type: Report from Study
  Country: FR (occurrence: FR)
  Receive Date: 20170125
  Receipt Date: 20170216
  Transmission Date: 20170428
  Serious: Yes (Hospitalization, Other)
  Sender: FDA-Public Use
  Company Number: FR-ACTELION-A-CH2016-147565

PATIENT
  Age: 50 Year
  Sex: Female

DRUGS (7)
  1. UPTRAVI [Suspect]
     Active Substance: SELEXIPAG
     Indication: PULMONARY ARTERIAL HYPERTENSION
     Dosage: 200 ?G, BID
     Route: 048
     Dates: start: 20161209
  2. KARDEGIC [Concomitant]
     Active Substance: ASPIRIN LYSINE
     Indication: CREST SYNDROME
     Dosage: 160 MG, OD
     Dates: start: 2014
  3. OPSUMIT [Concomitant]
     Active Substance: MACITENTAN
     Indication: PULMONARY ARTERIAL HYPERTENSION
     Dosage: 10 MG, QD
     Route: 048
     Dates: start: 20120205
  4. SILDENAFIL. [Concomitant]
     Active Substance: SILDENAFIL
     Indication: PULMONARY ARTERIAL HYPERTENSION
     Dosage: 20 MG, TID
     Route: 048
     Dates: start: 20141014
  5. UPTRAVI [Suspect]
     Active Substance: SELEXIPAG
     Dosage: 400 ?G, BID
     Route: 048
     Dates: start: 20161216
  6. LERCAN [Concomitant]
     Active Substance: LERCANIDIPINE
     Indication: HYPERTENSION
     Dosage: 20 MG, BID
     Dates: start: 2014
  7. UPTRAVI [Suspect]
     Active Substance: SELEXIPAG
     Dosage: 600 ?G, BID
     Route: 048
     Dates: start: 20161223

REACTIONS (15)
  - Condition aggravated [Unknown]
  - Facial paralysis [Recovered/Resolved]
  - Diarrhoea [Recovered/Resolved]
  - Diet noncompliance [Unknown]
  - Cardiac failure [Recovering/Resolving]
  - Motor dysfunction [Recovered/Resolved]
  - Hypoxia [Recovering/Resolving]
  - Aphasia [Recovered/Resolved]
  - Fluid retention [Recovering/Resolving]
  - Embolic stroke [Recovered/Resolved]
  - Atrial septal defect [Unknown]
  - Pain [Not Recovered/Not Resolved]
  - Paralysis [Recovered/Resolved]
  - Pulmonary arterial hypertension [Unknown]
  - Oedema peripheral [Recovering/Resolving]

NARRATIVE: CASE EVENT DATE: 20161221
